FAERS Safety Report 14447192 (Version 2)
Quarter: 2018Q1

REPORT INFORMATION
  Report Type: Spontaneous
  Country: US (occurrence: US)
  Receive Date: 20180126
  Receipt Date: 20180228
  Transmission Date: 20180509
  Serious: No
  Sender: FDA-Public Use
  Company Number: US-PFIZER INC-2018029916

PATIENT
  Age: 59 Year
  Sex: Female
  Weight: 81.63 kg

DRUGS (12)
  1. VENTOLIN HFA [Concomitant]
     Active Substance: ALBUTEROL SULFATE
     Indication: BRONCHITIS CHRONIC
     Dosage: UNK, UNK  [TWICE TO SOMETIMES 3 TIMES A DAY]
  2. NICOTROL [Suspect]
     Active Substance: NICOTINE
     Indication: SMOKING CESSATION THERAPY
     Dosage: 1 DF, UNK (1 INHALATION)
     Dates: start: 20180121
  3. ZYPREXA [Concomitant]
     Active Substance: OLANZAPINE
     Indication: MOOD ALTERED
     Dosage: 100 MG, AS NEEDED
  4. LAMOTRIGINE. [Concomitant]
     Active Substance: LAMOTRIGINE
     Indication: AFFECTIVE DISORDER
     Dosage: 200 MG, 1X/DAY
  5. SYMBICORT [Concomitant]
     Active Substance: BUDESONIDE\FORMOTEROL FUMARATE DIHYDRATE
     Indication: BRONCHITIS CHRONIC
     Dosage: 2 DF, 2X/DAY (2 INHALATIONS)
  6. SPIRIVA [Concomitant]
     Active Substance: TIOTROPIUM BROMIDE MONOHYDRATE
     Indication: BRONCHITIS CHRONIC
     Dosage: UNK , 1X/DAY [1 INHALATION A DAY IN THE MORNING ]
  7. NEXIUM 24HR [Concomitant]
     Active Substance: ESOMEPRAZOLE MAGNESIUM
     Indication: DYSPEPSIA
     Dosage: 40 MG, 1X/DAY
  8. CYMBALTA [Concomitant]
     Active Substance: DULOXETINE HYDROCHLORIDE
     Indication: AFFECTIVE DISORDER
     Dosage: 30 MG, 1X/DAY
  9. LORAZEPAM. [Concomitant]
     Active Substance: LORAZEPAM
     Indication: MENTAL DISORDER
     Dosage: 1 DF, 3X/DAY
  10. QUETIAPINE. [Concomitant]
     Active Substance: QUETIAPINE
     Indication: SLEEP DISORDER
     Dosage: 200 MG, 1X/DAY [AT BEDTIME ]
  11. NICOTROL [Suspect]
     Active Substance: NICOTINE
     Dosage: UNK
  12. SYMBYAX [Concomitant]
     Active Substance: FLUOXETINE HYDROCHLORIDE\OLANZAPINE
     Indication: AFFECTIVE DISORDER
     Dosage: 1 DF, 1X/DAY [(OLANZAPINE: 12 MG)/(FLUOXETINE:50 MG)]

REACTIONS (3)
  - Incorrect route of drug administration [Unknown]
  - Nasal discomfort [Recovered/Resolved]
  - Product quality issue [Unknown]

NARRATIVE: CASE EVENT DATE: 20180121
